FAERS Safety Report 25755395 (Version 3)
Quarter: 2025Q3

REPORT INFORMATION
  Report Type: Report from Study
  Country: US (occurrence: US)
  Receive Date: 20250903
  Receipt Date: 20250926
  Transmission Date: 20251020
  Serious: No
  Sender: MALLINCKRODT
  Company Number: US-MALLINCKRODT-MNK202505267

PATIENT
  Age: 17 Year
  Sex: Male

DRUGS (1)
  1. CORTICOTROPIN [Suspect]
     Active Substance: CORTICOTROPIN
     Indication: Vernal keratoconjunctivitis
     Dosage: 80 UNITS
     Route: 058
     Dates: start: 20250809

REACTIONS (3)
  - Dry eye [Not Recovered/Not Resolved]
  - Blister [Unknown]
  - Injection site mass [Unknown]

NARRATIVE: CASE EVENT DATE: 20250101
